FAERS Safety Report 5069686-5 (Version None)
Quarter: 2006Q3

REPORT INFORMATION
  Report Type: 
  Country: None (occurrence: None)
  Receive Date: 20060714
  Receipt Date: 20060404
  Transmission Date: 20061208
  Serious: No
  Sender: FDA-Public Use
  Company Number: 2006SP001533

PATIENT
  Age: 52 Year
  Sex: Female
  Weight: 55.3388 kg

DRUGS (1)
  1. LUNESTA [Suspect]
     Indication: INSOMNIA
     Dosage: 2 MX;X1;ORAL
     Route: 048
     Dates: start: 20060403

REACTIONS (1)
  - HEART RATE INCREASED [None]
